FAERS Safety Report 20628051 (Version 1)
Quarter: 2022Q1

REPORT INFORMATION
  Report Type: Spontaneous
  Country: US (occurrence: US)
  Receive Date: 20220323
  Receipt Date: 20220323
  Transmission Date: 20220423
  Serious: No
  Sender: FDA-Public Use
  Company Number: US-PFIZER INC-202100999962

PATIENT
  Age: 59 Year
  Sex: Male

DRUGS (1)
  1. XELJANZ [Suspect]
     Active Substance: TOFACITINIB CITRATE
     Indication: Colitis ulcerative
     Dosage: 5 MG, 1X/DAY
     Route: 048
     Dates: start: 20210801

REACTIONS (5)
  - Intentional product misuse [Unknown]
  - Anxiety [Unknown]
  - Energy increased [Unknown]
  - Fatigue [Unknown]
  - Feeling abnormal [Unknown]
